FAERS Safety Report 12741462 (Version 2)
Quarter: 2016Q4

REPORT INFORMATION
  Report Type: Spontaneous
  Country: US (occurrence: US)
  Receive Date: 20160914
  Receipt Date: 20161220
  Transmission Date: 20170207
  Serious: No
  Sender: FDA-Public Use
  Company Number: US-USVNA-000001

PATIENT
  Age: 69 Year
  Sex: Female
  Weight: 56.25 kg

DRUGS (4)
  1. OLOPATADINE/OLOPATADINE HYDROCHLORIDE [Suspect]
     Active Substance: OLOPATADINE
     Indication: HYPERSENSITIVITY
     Dosage: DOSE: 1 DROP, PER EYE,??OLOPATADINE HCL OPHTHALMIC SOLUTION USP 0.1%,
     Route: 047
     Dates: start: 201605, end: 201606
  2. SYNTHROID [Concomitant]
     Active Substance: LEVOTHYROXINE SODIUM
  3. ALLEGRA [Concomitant]
     Active Substance: FEXOFENADINE HYDROCHLORIDE
  4. LOSARTAN. [Concomitant]
     Active Substance: LOSARTAN

REACTIONS (1)
  - Headache [Recovered/Resolved]

NARRATIVE: CASE EVENT DATE: 201605
